FAERS Safety Report 4609970-X (Version None)
Quarter: 2005Q1

REPORT INFORMATION
  Report Type: 
  Country: None (occurrence: None)
  Receive Date: 20050314
  Receipt Date: 20041020
  Transmission Date: 20050727
  Serious: Yes (Hospitalization)
  Sender: FDA-Public Use
  Company Number: 9145

PATIENT
  Age: 54 Year
  Sex: Female

DRUGS (15)
  1. METHOTREXATE [Suspect]
     Dosage: 4 MG WEEKLY
     Route: 048
     Dates: start: 20020404, end: 20030814
  2. METHOTREXATE [Suspect]
     Dosage: 4 MG WEEKLY
     Route: 048
     Dates: start: 20030814
  3. METHOTREXATE [Suspect]
     Dosage: 4 MG WEEKLY
     Route: 048
     Dates: start: 20040526
  4. METHOTREXATE [Suspect]
     Dosage: 4 MG WEEKLY
     Route: 048
     Dates: start: 20040609
  5. METHOTREXATE [Suspect]
     Dosage: 4 MG WEEKLY
     Route: 048
     Dates: start: 20040708
  6. INFLIXIMAB [Suspect]
     Indication: RHEUMATOID ARTHRITIS
     Route: 042
     Dates: start: 20020404, end: 20030814
  7. INFLIXIMAB [Suspect]
     Indication: RHEUMATOID ARTHRITIS
     Route: 042
     Dates: start: 20030814
  8. INFLIXIMAB [Suspect]
     Indication: RHEUMATOID ARTHRITIS
     Route: 042
     Dates: start: 20040526
  9. INFLIXIMAB [Suspect]
     Indication: RHEUMATOID ARTHRITIS
     Route: 042
     Dates: start: 20040609
  10. INFLIXIMAB [Suspect]
     Indication: RHEUMATOID ARTHRITIS
     Route: 042
     Dates: start: 20040708
  11. METHOTREXATE [Concomitant]
  12. PREDNISONE [Concomitant]
  13. LOXOPROFEN SODIUM [Concomitant]
  14. ALENDRONATE SODIUM [Concomitant]
  15. REBAMIPIDE [Concomitant]

REACTIONS (1)
  - MONARTHRITIS [None]
